FAERS Safety Report 11019818 (Version 2)
Quarter: 2015Q2

REPORT INFORMATION
  Report Type: Spontaneous
  Country: US (occurrence: US)
  Receive Date: 20150412
  Receipt Date: 20150525
  Transmission Date: 20150821
  Serious: No
  Sender: FDA-Public Use
  Company Number: US-JNJFOC-20121110832

PATIENT
  Age: 45 Year
  Sex: Female
  Weight: 47.63 kg

DRUGS (1)
  1. LEVAQUIN [Suspect]
     Active Substance: LEVOFLOXACIN
     Indication: EAR INFECTION
     Route: 048
     Dates: start: 201211, end: 201211

REACTIONS (5)
  - Arthritis [Unknown]
  - Paraesthesia [Unknown]
  - Muscle spasms [Unknown]
  - Lethargy [Unknown]
  - Muscular weakness [Unknown]

NARRATIVE: CASE EVENT DATE: 201211
